FAERS Safety Report 5882285-8 (Version None)
Quarter: 2008Q3

REPORT INFORMATION
  Report Type: 
  Country: None (occurrence: None)
  Receive Date: 20080912
  Receipt Date: 20080725
  Transmission Date: 20090109
  Serious: No
  Sender: FDA-Public Use
  Company Number: US-ABBOTT-08P-163-0466889-00

PATIENT
  Sex: Female
  Weight: 42.222 kg

DRUGS (4)
  1. HUMIRA [Suspect]
     Indication: RHEUMATOID ARTHRITIS
     Route: 050
     Dates: start: 20080501
  2. MULTI-VITAMINS [Concomitant]
     Indication: DRUG USE FOR UNKNOWN INDICATION
     Route: 048
     Dates: start: 20060101
  3. FISH OIL [Concomitant]
     Indication: DRUG USE FOR UNKNOWN INDICATION
     Dosage: 1 PILL DAILY
     Route: 048
     Dates: start: 20060101
  4. FYSPENE OVER-THE-COUNTER [Concomitant]
     Indication: DRY EYE
     Dosage: 1 DROP DAILY
     Route: 047
     Dates: start: 20080601

REACTIONS (1)
  - PAIN IN EXTREMITY [None]
